FAERS Safety Report 7531852-4 (Version None)
Quarter: 2011Q2

REPORT INFORMATION
  Report Type: 
  Country: None (occurrence: None)
  Receive Date: 20110607
  Receipt Date: 20110607
  Transmission Date: 20111010
  Serious: Yes (Life-Threatening)
  Sender: FDA-Public Use
  Company Number: None

PATIENT
  Age: 58 Year
  Sex: Male
  Weight: 87 kg

DRUGS (1)
  1. CEPHALEXIN [Suspect]
     Indication: CELLULITIS
     Dosage: PO
     Route: 048
     Dates: start: 20110117, end: 20110117

REACTIONS (1)
  - ANGIOEDEMA [None]
